FAERS Safety Report 19090039 (Version 2)
Quarter: 2021Q2

REPORT INFORMATION
  Report Type: Spontaneous
  Country: US (occurrence: US)
  Receive Date: 20210404
  Receipt Date: 20210628
  Transmission Date: 20210717
  Serious: Yes (Life-Threatening, Hospitalization, Other)
  Sender: FDA-Public Use
  Company Number: US-TEVA-2021-US-1895768

PATIENT
  Age: 32 Year
  Sex: Male

DRUGS (34)
  1. HALOPERIDOL. [Suspect]
     Active Substance: HALOPERIDOL
     Indication: PROPHYLAXIS AGAINST PSYCHOMOTOR AGITATION
     Dosage: 5 MG
     Route: 065
  2. SLIN [Concomitant]
     Indication: SUPPLEMENTATION THERAPY
     Route: 065
  3. CANNABUTTER [Concomitant]
     Indication: SEDATIVE THERAPY
     Dosage: 2352MG
     Route: 065
  4. 100% CREATINE [Concomitant]
     Indication: SUPPLEMENTATION THERAPY
     Dosage: 5GM
     Route: 065
  5. NUTRICLEAN PROBIOTICS [Concomitant]
     Indication: SUPPLEMENTATION THERAPY
     Route: 065
  6. OSTAMUSCLE [Suspect]
     Active Substance: DIETARY SUPPLEMENT\ENOBOSARM
     Indication: SUPPLEMENTATION THERAPY
     Dosage: 10MG
     Route: 065
  7. DIPHENHYDRAMINE. [Suspect]
     Active Substance: DIPHENHYDRAMINE
     Indication: PROPHYLAXIS AGAINST PSYCHOMOTOR AGITATION
     Dosage: 50MG
     Route: 065
  8. ADVANCED LIPITRIM [Concomitant]
     Indication: SUPPLEMENTATION THERAPY
     Dosage: 150MG
     Route: 065
  9. ASTAXANTHIN [Concomitant]
     Active Substance: ASTAXANTHIN
     Indication: SUPPLEMENTATION THERAPY
     Dosage: 6MG
     Route: 065
  10. MAGNESIUM [Concomitant]
     Active Substance: MAGNESIUM
     Indication: SUPPLEMENTATION THERAPY
     Dosage: 250MG
     Route: 065
  11. NIACIN. [Concomitant]
     Active Substance: NIACIN
     Indication: SUPPLEMENTATION THERAPY
     Dosage: 500MG
     Route: 065
  12. TESTOLONE [Suspect]
     Active Substance: DIETARY SUPPLEMENT\VOSILASARM
     Indication: SUPPLEMENTATION THERAPY
     Dosage: 10MG
     Route: 065
  13. LORAZEPAM. [Suspect]
     Active Substance: LORAZEPAM
     Indication: PROPHYLAXIS AGAINST PSYCHOMOTOR AGITATION
     Dosage: 2MG
     Route: 065
  14. T3 [Concomitant]
     Active Substance: LIOTHYRONINE SODIUM
     Indication: SUPPLEMENTATION THERAPY
     Dosage: 200MCG
     Route: 065
  15. GROWTH HORMONE [Concomitant]
     Active Substance: SOMATROPIN
     Indication: SUPPLEMENTATION THERAPY
     Dosage: 10MG
     Route: 048
  16. HEART HEALTH [Concomitant]
     Active Substance: DIETARY SUPPLEMENT
     Indication: SUPPLEMENTATION THERAPY
     Route: 065
  17. TOREMIFENE [Suspect]
     Active Substance: TOREMIFENE
     Indication: SUPPLEMENTATION THERAPY
     Dosage: 60MG
     Route: 065
  18. FORMULA [Concomitant]
     Indication: SEDATIVE THERAPY
     Route: 065
  19. A.A.S. CYCLE [Concomitant]
     Indication: SUPPLEMENTATION THERAPY
     Route: 065
  20. BLUE OX TEST BOOSTER [Concomitant]
     Indication: SUPPLEMENTATION THERAPY
     Dosage: ZINC MONOMETHIONINE AND ASPARTATE 20 MG
     Route: 065
  21. MUSCLE IMPACT [Concomitant]
     Indication: SUPPLEMENTATION THERAPY
     Route: 065
  22. ALLI [Concomitant]
     Active Substance: ORLISTAT
     Indication: SUPPLEMENTATION THERAPY
     Dosage: 60MG
     Route: 065
  23. BLISS ANTISTRESS [Concomitant]
     Indication: SEDATIVE THERAPY
     Route: 065
  24. OIL OF PEPPERMINT [Concomitant]
     Active Substance: PEPPERMINT OIL
     Indication: SUPPLEMENTATION THERAPY
     Dosage: 50MG
     Route: 065
  25. UBIQUINOL?QH [Concomitant]
     Indication: SUPPLEMENTATION THERAPY
     Dosage: 100MG
     Route: 065
  26. CLENBUTEROL [Suspect]
     Active Substance: CLENBUTEROL
     Indication: SUPPLEMENTATION THERAPY
     Dosage: 200MCG
     Route: 065
  27. FAT BURNING CREAM [Concomitant]
     Indication: SUPPLEMENTATION THERAPY
     Route: 065
  28. ADRENAL ESSENCE [Concomitant]
     Indication: SUPPLEMENTATION THERAPY
     Route: 065
  29. ARACHIDONIC ACID [Concomitant]
     Active Substance: ARACHIDONIC ACID
     Indication: SUPPLEMENTATION THERAPY
     Dosage: 350MG
     Route: 065
  30. CERCUMIN EXTREME [Concomitant]
     Indication: SUPPLEMENTATION THERAPY
     Route: 065
  31. MEGARED HEART HEALTH [Concomitant]
     Indication: SUPPLEMENTATION THERAPY
     Route: 065
  32. CARDARINE [Concomitant]
     Indication: SUPPLEMENTATION THERAPY
     Dosage: 10MG
     Route: 065
  33. INSULIN [Concomitant]
     Active Substance: INSULIN NOS
     Indication: SUPPLEMENTATION THERAPY
     Route: 065
  34. POTASSIUM [Concomitant]
     Active Substance: POTASSIUM
     Indication: SUPPLEMENTATION THERAPY
     Dosage: 99MG
     Route: 065

REACTIONS (5)
  - Urine copper increased [Recovered/Resolved]
  - Acute hepatic failure [Recovered/Resolved]
  - Encephalopathy [Recovered/Resolved]
  - Rhabdomyolysis [Recovered/Resolved]
  - Drug ineffective [Unknown]
